FAERS Safety Report 9812295 (Version 1)
Quarter: 2014Q1

REPORT INFORMATION
  Report Type: Spontaneous
  Country: US (occurrence: US)
  Receive Date: 20140113
  Receipt Date: 20140113
  Transmission Date: 20141002
  Serious: Yes (Death)
  Sender: FDA-Public Use
  Company Number: US-PFIZER INC-2014004800

PATIENT
  Age: 33 Year
  Sex: Male

DRUGS (6)
  1. OXYCODONE HYDROCHLORIDE [Suspect]
     Dosage: UNK
  2. ALPRAZOLAM [Suspect]
     Dosage: UNK
  3. OXYMORPHONE [Suspect]
     Dosage: UNK
  4. QUETIAPINE [Suspect]
     Dosage: UNK
  5. MIRTAZAPINE [Suspect]
     Dosage: UNK
  6. DIAZEPAM [Suspect]
     Dosage: UNK

REACTIONS (3)
  - Drug abuse [Fatal]
  - Cardiac arrest [Fatal]
  - Respiratory arrest [Fatal]
